FAERS Safety Report 7672232-0 (Version None)
Quarter: 2011Q3

REPORT INFORMATION
  Report Type: 
  Country: None (occurrence: None)
  Receive Date: 20110809
  Receipt Date: 20110727
  Transmission Date: 20111222
  Serious: Yes (Death, Hospitalization)
  Sender: FDA-Public Use
  Company Number: PHHY2011FR71193

PATIENT

DRUGS (1)
  1. EVEROLIMUS [Suspect]

REACTIONS (2)
  - DEATH [None]
  - DYSPNOEA [None]
